FAERS Safety Report 4317402-4 (Version None)
Quarter: 2004Q1

REPORT INFORMATION
  Report Type: 
  Country: None (occurrence: None)
  Receive Date: 20040312
  Receipt Date: 20040301
  Transmission Date: 20041129
  Serious: Yes (Death)
  Sender: FDA-Public Use
  Company Number: 04P-056-0251924-00

PATIENT

DRUGS (1)
  1. TRICOR [Suspect]
     Dosage: PER ORAL
     Route: 048

REACTIONS (1)
  - PULMONARY FIBROSIS [None]
